FAERS Safety Report 8411240-9 (Version None)
Quarter: 2012Q2

REPORT INFORMATION
  Report Type: 
  Country: None (occurrence: None)
  Receive Date: 20120605
  Receipt Date: 20120503
  Transmission Date: 20120825
  Serious: No
  Sender: FDA-Public Use
  Company Number: US-AMGEN-USASP2012028369

PATIENT
  Age: 56 Year
  Sex: Female

DRUGS (2)
  1. ENBREL [Suspect]
     Indication: RHEUMATOID ARTHRITIS
     Dosage: 50 MG, QWK
     Dates: start: 20111122
  2. PLAQUENIL [Concomitant]
     Dosage: UNK MG, 2 TABLETS DAILY
     Dates: start: 20110501

REACTIONS (6)
  - EYE PRURITUS [None]
  - PRODUCTIVE COUGH [None]
  - SINUSITIS [None]
  - SINUS HEADACHE [None]
  - BRONCHITIS [None]
  - THROAT IRRITATION [None]
